FAERS Safety Report 21998218 (Version 2)
Quarter: 2023Q1

REPORT INFORMATION
  Report Type: Spontaneous
  Country: IN (occurrence: IN)
  Receive Date: 20230216
  Receipt Date: 20230306
  Transmission Date: 20230417
  Serious: Yes (Hospitalization)
  Sender: FDA-Public Use
  Company Number: IN-BoehringerIngelheim-2023-BI-217734

PATIENT

DRUGS (1)
  1. ALTEPLASE [Suspect]
     Active Substance: ALTEPLASE
     Indication: Cerebrovascular accident
     Route: 042

REACTIONS (4)
  - Drug ineffective [Unknown]
  - Product reconstitution quality issue [Unknown]
  - Wrong product stored [Unknown]
  - No adverse event [Unknown]
